FAERS Safety Report 6198547-3 (Version None)
Quarter: 2009Q2

REPORT INFORMATION
  Report Type: 
  Country: None (occurrence: None)
  Receive Date: 20090521
  Receipt Date: 20090509
  Transmission Date: 20091009
  Serious: Yes (Other)
  Sender: FDA-Public Use
  Company Number: US-PFIZER INC-2009163002

PATIENT
  Sex: Male
  Weight: 68.481 kg

DRUGS (5)
  1. DETROL LA [Suspect]
     Indication: POLLAKIURIA
     Dosage: 4 MG, 1X/DAY
     Route: 048
     Dates: start: 20090129
  2. DETROL LA [Interacting]
     Indication: PROSTATE CANCER
  3. DETROL LA [Interacting]
     Indication: HYPERTONIC BLADDER
  4. METAMUCIL-2 [Interacting]
  5. LUPRON [Concomitant]
     Dosage: UNK

REACTIONS (2)
  - DRUG INTERACTION [None]
  - URINARY RETENTION [None]
